FAERS Safety Report 21128323 (Version 1)
Quarter: 2022Q3

REPORT INFORMATION
  Report Type: Spontaneous
  Country: US (occurrence: None)
  Receive Date: 20220725
  Receipt Date: 20220725
  Transmission Date: 20221027
  Serious: No
  Sender: FDA-Public Use
  Company Number: 2022A252725

PATIENT
  Age: 897 Month
  Sex: Male
  Weight: 111.6 kg

DRUGS (1)
  1. BYDUREON BCISE [Suspect]
     Active Substance: EXENATIDE
     Indication: Weight decreased
     Route: 058
     Dates: start: 202205

REACTIONS (3)
  - Impaired gastric emptying [Not Recovered/Not Resolved]
  - Abdominal discomfort [Not Recovered/Not Resolved]
  - Device use issue [Not Recovered/Not Resolved]

NARRATIVE: CASE EVENT DATE: 20220101
